FAERS Safety Report 20698751 (Version 1)
Quarter: 2022Q2

REPORT INFORMATION
  Report Type: Spontaneous
  Country: CA (occurrence: CA)
  Receive Date: 20220412
  Receipt Date: 20220412
  Transmission Date: 20220720
  Serious: Yes (Death, Other)
  Sender: FDA-Public Use
  Company Number: CA-GILEAD-2022-0576871

PATIENT
  Age: 55 Year
  Sex: Male
  Weight: 96 kg

DRUGS (2)
  1. YESCARTA [Suspect]
     Active Substance: AXICABTAGENE CILOLEUCEL
     Indication: Diffuse large B-cell lymphoma
     Dosage: UNK
     Route: 042
     Dates: start: 20210221, end: 20210221
  2. CISPLATIN\CYTARABINE\DEXAMETHASONE [Concomitant]
     Active Substance: CISPLATIN\CYTARABINE\DEXAMETHASONE
     Indication: Chemotherapy
     Dosage: UNK
     Dates: start: 202201

REACTIONS (9)
  - Death [Fatal]
  - Cytokine release syndrome [Fatal]
  - Immune effector cell-associated neurotoxicity syndrome [Fatal]
  - Pancytopenia [Fatal]
  - Abdominal pain [Fatal]
  - Vomiting [Fatal]
  - Diarrhoea [Fatal]
  - Shock [Fatal]
  - Multi-organ disorder [Fatal]

NARRATIVE: CASE EVENT DATE: 20220326
